FAERS Safety Report 25058388 (Version 1)
Quarter: 2025Q1

REPORT INFORMATION
  Report Type: Spontaneous
  Country: US (occurrence: None)
  Receive Date: 20250310
  Receipt Date: 20250310
  Transmission Date: 20250409
  Serious: Yes (Hospitalization)
  Sender: FDA-CTU
  Company Number: None

PATIENT
  Sex: Female

DRUGS (11)
  1. BOTOX [Suspect]
     Active Substance: ONABOTULINUMTOXINA
     Indication: Migraine
     Dates: start: 20191203
  2. AIMOVIG INJ 140MG/ML [Concomitant]
  3. BENAZEPRIL TAB 40MG [Concomitant]
  4. CYMBALTA CAP 60MG [Concomitant]
  5. GABAPENTIN CAP 400MG [Concomitant]
  6. HYDROCHLOROT CAP 12.5MG [Concomitant]
  7. IMITREX TAB100MG [Concomitant]
  8. KETAMINE HCL POW [Concomitant]
  9. LATUDA TAB 80MG [Concomitant]
  10. LIDODERM 0185%, [Concomitant]
  11. MOBIC [Concomitant]
     Active Substance: MELOXICAM

REACTIONS (1)
  - Malignant melanoma stage III [None]
